FAERS Safety Report 6235505-4 (Version None)
Quarter: 2009Q2

REPORT INFORMATION
  Report Type: 
  Country: None (occurrence: None)
  Receive Date: 20090618
  Receipt Date: 20080616
  Transmission Date: 20091009
  Serious: No
  Sender: FDA-Public Use
  Company Number: US-ASTRAZENECA-2008UW12071

PATIENT
  Age: 62 Year
  Sex: Female

DRUGS (4)
  1. RHINOCORT [Suspect]
     Indication: SINUSITIS
     Route: 045
     Dates: start: 20020101
  2. RHINOCORT [Suspect]
     Indication: NASAL POLYPS
     Route: 045
     Dates: start: 20020101
  3. RHINOCORT [Suspect]
     Route: 045
     Dates: start: 20020101
  4. ALLERGY INJECTIONS [Concomitant]

REACTIONS (1)
  - VISION BLURRED [None]
